FAERS Safety Report 20875469 (Version 1)
Quarter: 2022Q2

REPORT INFORMATION
  Report Type: Report from Study
  Country: JP (occurrence: JP)
  Receive Date: 20220526
  Receipt Date: 20220526
  Transmission Date: 20220721
  Serious: Yes (Hospitalization)
  Sender: FDA-Public Use
  Company Number: JP-ABBVIE-22K-087-4269959-00

PATIENT
  Sex: Male

DRUGS (4)
  1. CARBIDOPA\LEVODOPA [Suspect]
     Active Substance: CARBIDOPA\LEVODOPA
     Indication: Parkinson^s disease
     Dosage: 2.5
     Route: 050
     Dates: start: 20220120
  2. CARBIDOPA\LEVODOPA [Suspect]
     Active Substance: CARBIDOPA\LEVODOPA
     Dosage: 2.3
     Route: 050
  3. ROTIGOTINE [Concomitant]
     Active Substance: ROTIGOTINE
     Indication: Product used for unknown indication
     Route: 062
  4. ROTIGOTINE [Concomitant]
     Active Substance: ROTIGOTINE
     Route: 062

REACTIONS (9)
  - Gastric cancer [Unknown]
  - Tremor [Unknown]
  - Stoma site pain [Unknown]
  - Stoma site extravasation [Unknown]
  - Stoma site induration [Unknown]
  - Stoma site inflammation [Unknown]
  - Stoma site reaction [Unknown]
  - Drug ineffective [Unknown]
  - Gait disturbance [Unknown]

NARRATIVE: CASE EVENT DATE: 20220101
